FAERS Safety Report 7757445-1 (Version None)
Quarter: 2011Q3

REPORT INFORMATION
  Report Type: 
  Country: None (occurrence: None)
  Receive Date: 20110916
  Receipt Date: 20110907
  Transmission Date: 20111222
  Serious: Yes (Other)
  Sender: FDA-Public Use
  Company Number: SI-GENZYME-THYR-1000558

PATIENT
  Age: 58 Year
  Sex: Male

DRUGS (3)
  1. THYROGEN [Suspect]
     Indication: THERAPEUTIC PROCEDURE
     Dosage: 0.9 MG, UNK
     Route: 030
  2. LEVOTHYROXINE SODIUM [Concomitant]
     Indication: THERAPEUTIC PROCEDURE
     Dosage: 2.5 MCG/KG, UNK
     Route: 065
  3. RADIOACTIVE IODINE SOLUTION [Concomitant]
     Indication: THERAPEUTIC PROCEDURE
     Dosage: 7.2 GBQ, ONCE
     Route: 048

REACTIONS (5)
  - THORACIC VERTEBRAL FRACTURE [None]
  - SPINAL CORD COMPRESSION [None]
  - SPASTIC PARAPLEGIA [None]
  - METASTATIC PAIN [None]
  - VOMITING [None]
